FAERS Safety Report 8218017-8 (Version None)
Quarter: 2012Q1

REPORT INFORMATION
  Report Type: 
  Country: None (occurrence: None)
  Receive Date: 20120319
  Receipt Date: 20120309
  Transmission Date: 20120608
  Serious: Yes (Hospitalization)
  Sender: FDA-Public Use
  Company Number: FR-PFIZER INC-2012067072

PATIENT
  Age: 89 Year
  Sex: Female

DRUGS (12)
  1. LIDOCAINE [Concomitant]
     Dosage: 1 DF, UNK
  2. PERINDOPRIL ERBUMINE [Concomitant]
     Indication: HYPERTENSION
     Dosage: 1.25 MG, UNK
     Route: 048
  3. MIRTAZAPINE [Suspect]
     Indication: MAJOR DEPRESSION
     Dosage: 15MG DAILY
     Route: 048
  4. ASPIRIN [Concomitant]
     Dosage: 160 MG, UNK
     Route: 048
  5. ACETAMINOPHEN [Concomitant]
  6. ALPRAZOLAM [Suspect]
     Indication: ANXIETY
     Dosage: 0.25MG DAILY
     Route: 048
  7. FUROSEMIDE [Concomitant]
     Indication: HYPERTENSION
     Dosage: 20 MG, UNK
     Route: 048
  8. ARICEPT [Suspect]
     Indication: DEMENTIA ALZHEIMER'S TYPE
     Dosage: 10 MG, 1X/DAY
     Route: 048
  9. ZOLPIDEM [Suspect]
     Indication: INSOMNIA
     Dosage: 1 DF, DAILY
     Route: 048
  10. AMIODARONE [Concomitant]
     Dosage: 142.8571 MG (1000 MG,1 IN 1 WK)
     Route: 048
  11. LEVOTHYROXINE SODIUM [Concomitant]
     Dosage: 25 UG, UNK
     Route: 048
  12. SPASFON [Concomitant]

REACTIONS (2)
  - FALL [None]
  - AMNESIA [None]
